FAERS Safety Report 15935980 (Version 1)
Quarter: 2019Q1

REPORT INFORMATION
  Report Type: Spontaneous
  Country: CA (occurrence: CA)
  Receive Date: 20190208
  Receipt Date: 20190208
  Transmission Date: 20190417
  Serious: Yes (Other)
  Sender: FDA-Public Use
  Company Number: CA-ROCHE-2258817

PATIENT
  Sex: Female

DRUGS (25)
  1. IMITREX [Concomitant]
     Active Substance: SUMATRIPTAN SUCCINATE
  2. ERTAPENEM. [Concomitant]
     Active Substance: ERTAPENEM SODIUM
  3. VANCOMYCIN [Concomitant]
     Active Substance: VANCOMYCIN
  4. AZITHROMYCIN ANHYDROUS. [Concomitant]
     Active Substance: AZITHROMYCIN ANHYDROUS
  5. CLINDAMYCIN. [Concomitant]
     Active Substance: CLINDAMYCIN
  6. VITAMIN B12 [Concomitant]
     Active Substance: CYANOCOBALAMIN
  7. RISEDRONATE [Concomitant]
     Active Substance: RISEDRONATE SODIUM
  8. FOLIC ACID. [Concomitant]
     Active Substance: FOLIC ACID
  9. FUROSEMIDE. [Concomitant]
     Active Substance: FUROSEMIDE
  10. OPUS CAL D 400 [Concomitant]
  11. INVANZ [Concomitant]
     Active Substance: ERTAPENEM SODIUM
  12. PANTOPRAZOLE [Concomitant]
     Active Substance: PANTOPRAZOLE
  13. VALACYCLOVIR [Concomitant]
     Active Substance: VALACYCLOVIR HYDROCHLORIDE
  14. TRANDATE [Concomitant]
     Active Substance: LABETALOL HYDROCHLORIDE
  15. DOCUSATE SODIUM. [Concomitant]
     Active Substance: DOCUSATE SODIUM
  16. AMITRIPTYLINE [Concomitant]
     Active Substance: AMITRIPTYLINE
  17. ONDANSETRON [Concomitant]
     Active Substance: ONDANSETRON
  18. NABILONE [Concomitant]
     Active Substance: NABILONE
  19. PREDNISONE. [Concomitant]
     Active Substance: PREDNISONE
  20. EPIPEN [Concomitant]
     Active Substance: EPINEPHRINE
  21. CELLCEPT [Suspect]
     Active Substance: MYCOPHENOLATE MOFETIL\MYCOPHENOLATE MOFETIL HYDROCHLORIDE
     Indication: PRODUCT USED FOR UNKNOWN INDICATION
     Route: 065
     Dates: start: 2016
  22. METHOTREXATE. [Concomitant]
     Active Substance: METHOTREXATE
  23. AMPICILLIN [Concomitant]
     Active Substance: AMPICILLIN
  24. AMLODIPINE [Concomitant]
     Active Substance: AMLODIPINE BESYLATE
  25. CANDESARTAN HCTZ [Concomitant]
     Active Substance: CANDESARTAN CILEXETIL\HYDROCHLOROTHIAZIDE

REACTIONS (11)
  - Aortitis [Unknown]
  - Abdominal hernia [Unknown]
  - Arteritis coronary [Unknown]
  - Renal atrophy [Unknown]
  - Hysterectomy [Unknown]
  - Hypertension [Unknown]
  - Abdominal discomfort [Unknown]
  - Renal disorder [Unknown]
  - Arteritis [Unknown]
  - Angiopathy [Unknown]
  - Stenosis [Unknown]
